FAERS Safety Report 16155496 (Version 2)
Quarter: 2019Q2

REPORT INFORMATION
  Report Type: Report from Study
  Country: None (occurrence: BR)
  Receive Date: 20190404
  Receipt Date: 20190427
  Transmission Date: 20190711
  Serious: Yes (Hospitalization, Disabling, Other)
  Sender: FDA-Public Use
  Company Number: BR-ABBVIE-19K-020-2730723-00

PATIENT
  Sex: Male
  Weight: 79 kg

DRUGS (1)
  1. HUMIRA [Suspect]
     Active Substance: ADALIMUMAB
     Indication: ANKYLOSING SPONDYLITIS
     Route: 058
     Dates: start: 20190321, end: 20190321

REACTIONS (4)
  - Mobility decreased [Unknown]
  - Mobility decreased [Unknown]
  - Thrombosis [Unknown]
  - Lymphoma [Unknown]

NARRATIVE: CASE EVENT DATE: 2019
